FAERS Safety Report 6914964-5 (Version None)
Quarter: 2010Q3

REPORT INFORMATION
  Report Type: 
  Country: None (occurrence: None)
  Receive Date: 20100809
  Receipt Date: 20100726
  Transmission Date: 20110219
  Serious: Yes (Hospitalization)
  Sender: FDA-Public Use
  Company Number: US-BAYER-201023176NA

PATIENT
  Age: 22 Year
  Sex: Female
  Weight: 100 kg

DRUGS (23)
  1. YAZ [Suspect]
     Indication: CONTRACEPTION
     Route: 048
     Dates: end: 20090201
  2. YASMIN [Suspect]
     Indication: CONTRACEPTION
     Route: 048
     Dates: start: 20050101, end: 20090101
  3. YASMIN [Suspect]
     Route: 048
     Dates: end: 20040101
  4. DROSPIRENONE AND EHTINYL ESTRADIOL [Suspect]
     Indication: CONTRACEPTION
     Route: 048
     Dates: start: 20081201, end: 20090101
  5. ZANTAC [Concomitant]
     Dosage: TOTAL DAILY DOSE: 300 MG  UNIT DOSE: 150 MG
     Route: 048
  6. PROZAC [Concomitant]
     Indication: MENTAL DISORDER
     Dosage: TOTAL DAILY DOSE: 40 MG  UNIT DOSE: 40 MG
     Route: 048
  7. PROZAC [Concomitant]
     Dosage: TOTAL DAILY DOSE: 20 MG  UNIT DOSE: 20 MG
     Route: 048
  8. PROZAC [Concomitant]
     Dosage: TOTAL DAILY DOSE: 60 MG  UNIT DOSE: 30 MG
  9. PROZAC [Concomitant]
     Dosage: TOTAL DAILY DOSE: 60 MG  UNIT DOSE: 30 MG
     Route: 048
  10. PREVACID [Concomitant]
     Dosage: TOTAL DAILY DOSE: 30 MG  UNIT DOSE: 30 MG
     Route: 048
  11. AMBIEN [Concomitant]
     Dosage: 10 1 QD
     Dates: end: 20080101
  12. AMBIEN [Concomitant]
     Dates: start: 20090101
  13. NEXIUM [Concomitant]
     Dosage: TOTAL DAILY DOSE: 40 MG  UNIT DOSE: 40 MG
     Route: 048
  14. FIORICET [Concomitant]
     Route: 048
     Dates: end: 20080101
  15. PHENERGAN [Concomitant]
     Dosage: UNIT DOSE: 25 MG
     Route: 048
  16. LUNESTA [Concomitant]
     Dosage: 20 MG QHS
  17. CHOLESTYRAMINE [Concomitant]
  18. DEPO [Concomitant]
  19. LASIX [Concomitant]
  20. IBUPROFEN [Concomitant]
     Dates: start: 19860101
  21. MOTRIN [Concomitant]
     Dates: start: 19860101
  22. IBUPROFEN (ADVIL) [Concomitant]
     Dates: start: 19860101
  23. ALEVE (CAPLET) [Concomitant]
     Dates: start: 20080101

REACTIONS (12)
  - ABDOMINAL DISTENSION [None]
  - ABDOMINAL PAIN [None]
  - ABDOMINAL TENDERNESS [None]
  - APHAGIA [None]
  - DIARRHOEA HAEMORRHAGIC [None]
  - GALLBLADDER DISORDER [None]
  - GASTRIC PH DECREASED [None]
  - NAUSEA [None]
  - PANCREATITIS [None]
  - POST PROCEDURAL DIARRHOEA [None]
  - PROCEDURAL PAIN [None]
  - VOMITING [None]
